FAERS Safety Report 7385023-5 (Version None)
Quarter: 2011Q1

REPORT INFORMATION
  Report Type: 
  Country: None (occurrence: None)
  Receive Date: 20110330
  Receipt Date: 20110321
  Transmission Date: 20110831
  Serious: Yes (Death, Life-Threatening, Hospitalization, Disabling, Other)
  Sender: FDA-Public Use
  Company Number: RU-BAYER-201047943GPV

PATIENT
  Sex: Male
  Weight: 65 kg

DRUGS (26)
  1. ASPIRIN [Interacting]
     Dates: end: 20090617
  2. ENAP [Concomitant]
  3. OMEZ [Concomitant]
  4. CLOPIDOGREL [Interacting]
     Indication: ACUTE CORONARY SYNDROME
  5. CLEXANE [Concomitant]
  6. GIK SOLUTION [Concomitant]
  7. VITAMIN B6 [Concomitant]
  8. DROPERIDOL [Concomitant]
  9. ZOCOR [Concomitant]
  10. ASPIRIN [Suspect]
     Indication: ACUTE CORONARY SYNDROME
     Dates: end: 20090617
  11. ASPIRIN [Interacting]
     Dates: start: 20090618
  12. ISOSORBIDE DINITRATE [Concomitant]
  13. MORPHINE [Concomitant]
  14. RIVAROXABAN [Interacting]
     Dosage: DOSAGE FORM: TABLET
     Dates: start: 20090619, end: 20100831
  15. ASPIRIN [Interacting]
     Dates: end: 20090615
  16. CLOPIDOGREL [Interacting]
     Dates: end: 20090615
  17. METOPROLOL TARTRATE [Concomitant]
  18. RANITIDINE HCL [Concomitant]
  19. PRESTARIUM [Concomitant]
  20. BETALOC ZOK [Concomitant]
  21. SIMVASTATIN [Concomitant]
  22. RIVAROXABAN [Interacting]
     Indication: ACUTE CORONARY SYNDROME
     Dosage: DOSAGE FORM: TABLET
     Route: 048
     Dates: start: 20100915, end: 20101112
  23. HEPARIN SODIUM [Concomitant]
  24. MAGNESIUM [Concomitant]
  25. METOPROLOL SUCCINATE [Concomitant]
  26. VITAMIN B12 [Concomitant]

REACTIONS (3)
  - HAEMORRHAGIC STROKE [None]
  - SUDDEN DEATH [None]
  - ANGINA UNSTABLE [None]
